FAERS Safety Report 8259645-3 (Version None)
Quarter: 2012Q2

REPORT INFORMATION
  Report Type: 
  Country: None (occurrence: None)
  Receive Date: 20120404
  Receipt Date: 20120402
  Transmission Date: 20120825
  Serious: Yes (Life-Threatening, Hospitalization)
  Sender: FDA-Public Use
  Company Number: PHEH2012US004520

PATIENT
  Age: 48 Year
  Sex: Female
  Weight: 95.238 kg

DRUGS (13)
  1. STARLIX [Concomitant]
     Dosage: 60 MG, UNK
  2. VERELAN [Concomitant]
     Dosage: 200 MG, UNK
  3. CALCIUM-D-SANDOZ [Concomitant]
  4. ALLEGRA-D 12 HOUR [Concomitant]
  5. ASPIRIN [Concomitant]
     Dosage: 81 MG, UNK
  6. COLCHICINA [Concomitant]
  7. MICARDIS [Concomitant]
     Dosage: 80 MG, UNK
  8. NIACIN [Concomitant]
     Dosage: 500 MG, UNK
  9. SINGULAIR [Concomitant]
     Dosage: 10 MG, UNK
  10. COMBIVENT [Concomitant]
     Dosage: 90-18 MCG, UNK
  11. TEKTURNA [Suspect]
     Indication: HYPERTENSION
     Dosage: 150 MG, QD
     Route: 048
     Dates: start: 20111109, end: 20111216
  12. LIPITOR [Concomitant]
     Dosage: 20 MG, UNK
  13. METFORMIN HCL [Concomitant]
     Dosage: 500 MG, UNK

REACTIONS (7)
  - SPEECH DISORDER [None]
  - HEADACHE [None]
  - DISORIENTATION [None]
  - CONFUSIONAL STATE [None]
  - CEREBROVASCULAR ACCIDENT [None]
  - DIZZINESS [None]
  - TRANSIENT ISCHAEMIC ATTACK [None]
